FAERS Safety Report 19371475 (Version 2)
Quarter: 2021Q3

REPORT INFORMATION
  Report Type: Report from Study
  Country: None (occurrence: BR)
  Receive Date: 20210604
  Receipt Date: 20210713
  Transmission Date: 20211014
  Serious: Yes (Hospitalization, Other)
  Sender: FDA-Public Use
  Company Number: BR-ABBVIE-21K-020-3882147-00

PATIENT
  Sex: Female
  Weight: 59 kg

DRUGS (5)
  1. COVID?19 VACCINE [Concomitant]
     Dosage: SECOND DOSE
     Route: 030
     Dates: start: 2021, end: 2021
  2. HUMIRA [Suspect]
     Active Substance: ADALIMUMAB
     Dosage: UNSPECIFIED DOSE
     Route: 058
     Dates: start: 2021
  3. COVID?19 VACCINE [Concomitant]
     Indication: COVID-19 IMMUNISATION
     Dosage: FIRST DOSE
     Route: 030
     Dates: start: 2021, end: 2021
  4. ALENIA [Concomitant]
     Indication: ASTHMA
  5. HUMIRA [Suspect]
     Active Substance: ADALIMUMAB
     Indication: PSORIASIS
     Dosage: UNSPECIFIED DOSE
     Route: 058
     Dates: start: 20151222, end: 2021

REACTIONS (12)
  - Somnolence [Recovered/Resolved]
  - Psoriasis [Recovering/Resolving]
  - Weight decreased [Recovering/Resolving]
  - Coronavirus infection [Recovered/Resolved]
  - Nervous system disorder [Unknown]
  - Hypoaesthesia [Not Recovered/Not Resolved]
  - Musculoskeletal disorder [Recovering/Resolving]
  - Hypophagia [Recovered/Resolved]
  - Intervertebral disc protrusion [Recovered/Resolved]
  - Oxygen saturation decreased [Recovered/Resolved]
  - Blood potassium increased [Recovered/Resolved]
  - Asthenia [Recovered/Resolved]

NARRATIVE: CASE EVENT DATE: 2016
